FAERS Safety Report 4588303-1 (Version None)
Quarter: 2005Q1

REPORT INFORMATION
  Report Type: 
  Country: None (occurrence: None)
  Receive Date: 20050216
  Receipt Date: 20050204
  Transmission Date: 20050727
  Serious: No
  Sender: FDA-Public Use
  Company Number: 2004AP00066

PATIENT
  Age: 73 Year
  Sex: Male

DRUGS (1)
  1. CANDESARTAN [Suspect]
     Indication: ESSENTIAL HYPERTENSION

REACTIONS (9)
  - C-REACTIVE PROTEIN INCREASED [None]
  - HAEMATURIA [None]
  - HENOCH-SCHONLEIN PURPURA [None]
  - NEPHROTIC SYNDROME [None]
  - PITTING OEDEMA [None]
  - PROTEINURIA [None]
  - RASH PRURITIC [None]
  - URTICARIA [None]
  - VASCULITIS [None]
